FAERS Safety Report 24408007 (Version 1)
Quarter: 2024Q4

REPORT INFORMATION
  Report Type: Spontaneous
  Country: US (occurrence: US)
  Receive Date: 20241007
  Receipt Date: 20241007
  Transmission Date: 20250115
  Serious: No
  Sender: RECKITT BENCKISER
  Company Number: US-INDIVIOR US-INDV-142716-2024

PATIENT

DRUGS (1)
  1. SUBOXONE [Suspect]
     Active Substance: BUPRENORPHINE HYDROCHLORIDE\NALOXONE HYDROCHLORIDE
     Indication: Drug abuser
     Dosage: 8 MILLIGRAM, UNKNOWN
     Route: 065

REACTIONS (2)
  - Off label use [Not Recovered/Not Resolved]
  - Drug dependence [Not Recovered/Not Resolved]
